FAERS Safety Report 5643379-5 (Version None)
Quarter: 2008Q1

REPORT INFORMATION
  Report Type: 
  Country: None (occurrence: None)
  Receive Date: 20080131
  Receipt Date: 20071008
  Transmission Date: 20080703
  Serious: Yes (Other)
  Sender: FDA-Public Use
  Company Number: 163-21880-07100442

PATIENT
  Age: 69 Year
  Sex: Male

DRUGS (6)
  1. REVLIMID [Suspect]
     Indication: MYELODYSPLASTIC SYNDROME
     Dosage: 10 MG, 1 IN 1 D, ORAL
     Route: 048
     Dates: start: 20070903
  2. ARANESP [Concomitant]
  3. FOLIC ACID [Concomitant]
  4. CELEXA [Concomitant]
  5. TRIHEXYPHENIDYL HCL [Concomitant]
  6. ALOPEREDIN (HALOPERIDOL) [Concomitant]

REACTIONS (1)
  - HAEMOGLOBIN DECREASED [None]
